FAERS Safety Report 18411864 (Version 1)
Quarter: 2020Q4

REPORT INFORMATION
  Report Type: Spontaneous
  Country: CA (occurrence: CA)
  Receive Date: 20201021
  Receipt Date: 20201021
  Transmission Date: 20210114
  Serious: Yes (Other)
  Sender: FDA-Public Use
  Company Number: CA-JNJFOC-20201027084

PATIENT
  Age: 24 Year
  Sex: Female
  Weight: 75 kg

DRUGS (2)
  1. INFLIXIMAB, RECOMBINANT [Suspect]
     Active Substance: INFLIXIMAB
     Indication: CROHN^S DISEASE
     Route: 042
  2. METHOTREXATE. [Concomitant]
     Active Substance: METHOTREXATE
     Route: 048

REACTIONS (8)
  - Abdominal pain [Unknown]
  - Blood pressure diastolic increased [Unknown]
  - Arthralgia [Unknown]
  - Body temperature increased [Unknown]
  - Infusion related reaction [Unknown]
  - Heart rate increased [Unknown]
  - Dizziness [Unknown]
  - Malaise [Unknown]
